FAERS Safety Report 7957562-7 (Version None)
Quarter: 2011Q4

REPORT INFORMATION
  Report Type: 
  Country: None (occurrence: None)
  Receive Date: 20111205
  Receipt Date: 20111118
  Transmission Date: 20120403
  Serious: Yes (Hospitalization)
  Sender: FDA-Public Use
  Company Number: FR-GLAXOSMITHKLINE-B0763741A

PATIENT
  Sex: Male

DRUGS (1)
  1. ARIXTRA [Suspect]
     Indication: PULMONARY EMBOLISM
     Route: 065
     Dates: start: 20111001, end: 20111028

REACTIONS (2)
  - MUSCLE HAEMORRHAGE [None]
  - HAEMORRHAGIC ANAEMIA [None]
